FAERS Safety Report 4559048-9 (Version None)
Quarter: 2005Q1

REPORT INFORMATION
  Report Type: 
  Country: None (occurrence: None)
  Receive Date: 20050124
  Receipt Date: 20050110
  Transmission Date: 20050727
  Serious: Yes (Hospitalization, Other)
  Sender: FDA-Public Use
  Company Number: FR-JNJFOC-20050104396

PATIENT
  Age: 62 Year
  Sex: Male

DRUGS (4)
  1. INFLIXIMAB [Suspect]
     Dosage: LAST INFUSION WAS PERFORMED SIX WEEKS PRIOR TO THE APPEARANCE OF THE FIRSST CUTANEOUS SYMPTOMS.
  2. INFLIXIMAB [Suspect]
     Indication: RHEUMATOID ARTHRITIS
     Dosage: NINE MONTHS PRIOR TO ONSET OF THE EVENT.
  3. PREDNISONE [Concomitant]
  4. AZATHIOPRINE [Concomitant]

REACTIONS (1)
  - PEMPHIGUS [None]
